FAERS Safety Report 21411939 (Version 1)
Quarter: 2022Q4

REPORT INFORMATION
  Report Type: Spontaneous
  Country: US (occurrence: None)
  Receive Date: 20221005
  Receipt Date: 20221005
  Transmission Date: 20230112
  Serious: No
  Sender: FDA-Public Use
  Company Number: None

PATIENT
  Age: 85 Year
  Sex: Male
  Weight: 73.35 kg

DRUGS (2)
  1. OCTAGAM IMMUNE GLOBULIN (HUMAN) [Suspect]
     Active Substance: HUMAN IMMUNOGLOBULIN G
     Indication: Polymyositis
     Dosage: OTHER FREQUENCY : 30G DAILY X 5 DAYS;?
     Route: 042
     Dates: start: 20220916, end: 20220922
  2. OCTAGAM IMMUNE GLOBULIN (HUMAN) [Suspect]
     Active Substance: HUMAN IMMUNOGLOBULIN G
     Indication: Interstitial lung disease

REACTIONS (3)
  - Dyspnoea exertional [None]
  - Oxygen saturation decreased [None]
  - Infusion related reaction [None]

NARRATIVE: CASE EVENT DATE: 20220922
